FAERS Safety Report 5410496-4 (Version None)
Quarter: 2007Q3

REPORT INFORMATION
  Report Type: 
  Country: None (occurrence: None)
  Receive Date: 20070810
  Receipt Date: 20070123
  Transmission Date: 20080115
  Serious: No
  Sender: FDA-Public Use
  Company Number: A0636720A

PATIENT
  Age: 63 Year
  Sex: Female

DRUGS (5)
  1. PAROXETINE [Suspect]
     Indication: DRUG USE FOR UNKNOWN INDICATION
     Dosage: 20MG TWICE PER DAY
     Route: 048
  2. COZAAR [Concomitant]
  3. LASIX [Concomitant]
  4. NORCO [Concomitant]
  5. COREG [Concomitant]

REACTIONS (1)
  - BREAST PAIN [None]
